FAERS Safety Report 6531443-8 (Version None)
Quarter: 2010Q1

REPORT INFORMATION
  Report Type: 
  Country: None (occurrence: None)
  Receive Date: 20100108
  Receipt Date: 20091130
  Transmission Date: 20100710
  Serious: No
  Sender: FDA-Public Use
  Company Number: A0833228A

PATIENT
  Age: 61 Year
  Sex: Female

DRUGS (2)
  1. TYKERB [Suspect]
     Indication: DRUG USE FOR UNKNOWN INDICATION
     Dosage: 5TAB PER DAY
     Route: 065
  2. HERCEPTIN [Concomitant]

REACTIONS (2)
  - ALOPECIA [None]
  - ILL-DEFINED DISORDER [None]
